FAERS Safety Report 5945926-2 (Version None)
Quarter: 2008Q4

REPORT INFORMATION
  Report Type: 
  Country: None (occurrence: None)
  Receive Date: 20081106
  Receipt Date: 20081029
  Transmission Date: 20090506
  Serious: Yes (Hospitalization)
  Sender: FDA-Public Use
  Company Number: GXKR2008ES10306

PATIENT
  Age: 24 Year
  Sex: Female

DRUGS (1)
  1. ZALEPLON [Suspect]
     Indication: INCORRECT DOSE ADMINISTERED
     Dosage: UP TO 28 TABLETS

REACTIONS (14)
  - BLOOD PRESSURE DECREASED [None]
  - CHROMATURIA [None]
  - CONFUSIONAL STATE [None]
  - HALLUCINATION, VISUAL [None]
  - LEUKOCYTOSIS [None]
  - LIP DISCOLOURATION [None]
  - MYOCLONUS [None]
  - OVERDOSE [None]
  - OXYGEN SATURATION DECREASED [None]
  - PALLOR [None]
  - RESTLESSNESS [None]
  - SINUS TACHYCARDIA [None]
  - SOMNOLENCE [None]
  - VOMITING [None]
